FAERS Safety Report 4320493-8 (Version None)
Quarter: 2004Q1

REPORT INFORMATION
  Report Type: 
  Country: None (occurrence: None)
  Receive Date: 20040322
  Receipt Date: 20040311
  Transmission Date: 20041129
  Serious: Yes (Hospitalization)
  Sender: FDA-Public Use
  Company Number: PHEH2004US03002

PATIENT
  Age: 57 Year
  Sex: Male

DRUGS (1)
  1. LAMISIL [Suspect]
     Indication: TINEA CAPITIS
     Dosage: 250 MG, QD
     Route: 048
     Dates: end: 20030913

REACTIONS (5)
  - ANTINUCLEAR ANTIBODY POSITIVE [None]
  - DERMATITIS BULLOUS [None]
  - RASH PSORIAFORM [None]
  - SYSTEMIC LUPUS ERYTHEMATOSUS [None]
  - TOXIC EPIDERMAL NECROLYSIS [None]
